FAERS Safety Report 21227242 (Version 1)
Quarter: 2022Q3

REPORT INFORMATION
  Report Type: Spontaneous
  Country: US (occurrence: None)
  Receive Date: 20220817
  Receipt Date: 20220817
  Transmission Date: 20221026
  Serious: Yes (Death, Life-Threatening, Hospitalization, Disabling, Other)
  Sender: FDA-Public Use
  Company Number: None

PATIENT
  Age: 57 Year
  Sex: Male
  Weight: 89.55 kg

DRUGS (6)
  1. INFLIXIMAB [Suspect]
     Active Substance: INFLIXIMAB
     Indication: Colitis ulcerative
     Dates: start: 20181107, end: 20181223
  2. ATORVASTATIN [Concomitant]
     Active Substance: ATORVASTATIN
  3. LEVOTHYROXINE [Concomitant]
     Active Substance: LEVOTHYROXINE
  4. LOSARTAN [Concomitant]
     Active Substance: LOSARTAN
  5. OMEPRAZOLE [Concomitant]
     Active Substance: OMEPRAZOLE
  6. WARFARIN [Concomitant]
     Active Substance: WARFARIN

REACTIONS (12)
  - Clostridium difficile infection [None]
  - Dyspnoea [None]
  - Dysstasia [None]
  - Gait disturbance [None]
  - Pulmonary embolism [None]
  - Toxicity to various agents [None]
  - Pneumocystis jirovecii pneumonia [None]
  - Respiratory failure [None]
  - Interstitial lung disease [None]
  - Immune system disorder [None]
  - Weight decreased [None]
  - Candida infection [None]

NARRATIVE: CASE EVENT DATE: 20181223
